FAERS Safety Report 10392960 (Version 7)
Quarter: 2015Q3

REPORT INFORMATION
  Report Type: Report from Study
  Country: BR (occurrence: BR)
  Receive Date: 20140819
  Receipt Date: 20150812
  Transmission Date: 20151125
  Serious: Yes (Hospitalization)
  Sender: FDA-Public Use
  Company Number: PHHY2014BR103014

PATIENT
  Age: 65 Year
  Sex: Female
  Weight: 53 kg

DRUGS (4)
  1. PULMOZYME [Concomitant]
     Active Substance: DORNASE ALFA
     Indication: CYSTIC FIBROSIS
     Dosage: 500 MG, QD
     Route: 055
  2. ZOTEON [Suspect]
     Active Substance: TOBRAMYCIN
     Indication: CYSTIC FIBROSIS
     Dosage: 2 DF, BID (IN THE MORNING AND IN THE AFTERNOON)
     Route: 048
     Dates: start: 201407, end: 201407
  3. AZITHROMYCIN [Concomitant]
     Active Substance: AZITHROMYCIN ANHYDROUS
     Indication: CYSTIC FIBROSIS
     Dosage: 1 DF, TID
     Route: 065
  4. ZOTEON [Suspect]
     Active Substance: TOBRAMYCIN
     Indication: PSEUDOMONAS INFECTION
     Dosage: 4 DF, BID (4 TABS IN MORNING AND 4 TABS AT NIGHT)
     Route: 048
     Dates: start: 20140801, end: 20140812

REACTIONS (10)
  - Cough [Not Recovered/Not Resolved]
  - Abasia [Recovering/Resolving]
  - Bloody discharge [Recovered/Resolved]
  - Dyspnoea [Not Recovered/Not Resolved]
  - Haemoptysis [Unknown]
  - Oxygen saturation decreased [Not Recovered/Not Resolved]
  - Infection [Unknown]
  - Emotional disorder [Unknown]
  - Bronchospasm [Recovered/Resolved]
  - Lung disorder [Unknown]

NARRATIVE: CASE EVENT DATE: 201407
